FAERS Safety Report 8790945 (Version 1)
Quarter: 2012Q4

REPORT INFORMATION
  Report Type: Spontaneous
  Country: US (occurrence: None)
  Receive Date: 20120913
  Receipt Date: 20120913
  Transmission Date: 20130627
  Serious: No
  Sender: FDA-Public Use
  Company Number: None

PATIENT
  Age: 24 Year
  Sex: Male
  Weight: 61.24 kg

DRUGS (1)
  1. ATRIPLA [Suspect]
     Route: 048

REACTIONS (4)
  - Mood swings [None]
  - Anxiety [None]
  - Depression [None]
  - Loss of employment [None]
